FAERS Safety Report 5416772-3 (Version None)
Quarter: 2007Q3

REPORT INFORMATION
  Report Type: 
  Country: None (occurrence: None)
  Receive Date: 20070816
  Receipt Date: 20070807
  Transmission Date: 20080115
  Serious: Yes (Death, Other)
  Sender: FDA-Public Use
  Company Number: US-PURDUE-USA_2003_0006105

PATIENT
  Age: 68 Year
  Sex: Female

DRUGS (2)
  1. OXYCONTIN [Suspect]
     Indication: PAIN
     Dosage: 80 MG, UNK
     Route: 065
     Dates: end: 20030622
  2. NEURONTIN [Concomitant]

REACTIONS (8)
  - ANXIETY [None]
  - ASPHYXIA [None]
  - CEREBROVASCULAR ACCIDENT [None]
  - DRUG DEPENDENCE [None]
  - DRUG WITHDRAWAL SYNDROME [None]
  - DYSPNOEA [None]
  - MAJOR DEPRESSION [None]
  - PAIN [None]
